FAERS Safety Report 9183310 (Version 1)
Quarter: 2012Q4

REPORT INFORMATION
  Report Type: 
  Country: GB (occurrence: GB)
  Receive Date: 20121030
  Receipt Date: 20121030
  Transmission Date: 20130627
  Serious: Yes (Other)
  Sender: FDA-Public Use
  Company Number: GB-009507513-1210GBR011314

PATIENT

DRUGS (2)
  1. SINEMET [Suspect]
     Dosage: UNK
  2. SINEMET [Suspect]
     Dosage: UNK

REACTIONS (3)
  - Myocardial infarction [Unknown]
  - Drug dose omission [Unknown]
  - Wrong technique in drug usage process [Unknown]
